FAERS Safety Report 6054468-8 (Version None)
Quarter: 2009Q1

REPORT INFORMATION
  Report Type: 
  Country: None (occurrence: None)
  Receive Date: 20090123
  Receipt Date: 20090123
  Transmission Date: 20090719
  Serious: Yes (Death, Hospitalization)
  Sender: FDA-Public Use
  Company Number: None

PATIENT
  Age: 51 Year
  Sex: Female
  Weight: 71.2147 kg

DRUGS (1)
  1. TYSABRI [Suspect]
     Indication: MULTIPLE SCLEROSIS
     Dosage: MONTHLY IV
     Route: 042
     Dates: start: 20080813, end: 20081218

REACTIONS (6)
  - HYPOTENSION [None]
  - NO THERAPEUTIC RESPONSE [None]
  - PERITONITIS [None]
  - SECRETION DISCHARGE [None]
  - SMALL INTESTINAL PERFORATION [None]
  - SURGICAL PROCEDURE REPEATED [None]
